FAERS Safety Report 4689735-3 (Version None)
Quarter: 2005Q2

REPORT INFORMATION
  Report Type: 
  Country: None (occurrence: None)
  Receive Date: 20050613
  Receipt Date: 20050613
  Transmission Date: 20051028
  Serious: Yes (Other)
  Sender: FDA-Public Use
  Company Number: None

PATIENT
  Sex: Male
  Weight: 100 kg

DRUGS (2)
  1. ADRENALINE CHLORIDE SOLUTION 1:1000 [Suspect]
     Indication: WOUND
     Dosage: PRN TOPICAL
     Route: 061
  2. AVITENE [Suspect]
     Indication: WOUND
     Dosage: PRN  VAGINAL
     Route: 067

REACTIONS (1)
  - DRUG ADMINISTRATION ERROR [None]
